FAERS Safety Report 18108597 (Version 1)
Quarter: 2020Q3

REPORT INFORMATION
  Report Type: Spontaneous
  Country: US (occurrence: US)
  Receive Date: 20200804
  Receipt Date: 20200804
  Transmission Date: 20201103
  Serious: Yes (Life-Threatening, Hospitalization)
  Sender: FDA-Public Use
  Company Number: None

PATIENT
  Age: 41 Year
  Sex: Male

DRUGS (1)
  1. DEXTROSE/HEPARIN (HEPARIN NA 100UNT/ML/DEXTROSE 5% INJ) [Suspect]
     Active Substance: DEXTROSE\HEPARIN SODIUM
     Indication: PULMONARY EMBOLISM
     Dates: start: 20200420, end: 20200428

REACTIONS (8)
  - Pulmonary embolism [None]
  - Haemodialysis complication [None]
  - Deep vein thrombosis [None]
  - Respiratory failure [None]
  - Hypercoagulation [None]
  - Heparin-induced thrombocytopenia [None]
  - SARS-CoV-2 test positive [None]
  - Continuous haemodiafiltration [None]

NARRATIVE: CASE EVENT DATE: 20200424
